FAERS Safety Report 22090671 (Version 1)
Quarter: 2023Q1

REPORT INFORMATION
  Report Type: Spontaneous
  Country: GB (occurrence: GB)
  Receive Date: 20230313
  Receipt Date: 20230313
  Transmission Date: 20230418
  Serious: Yes (Other)
  Sender: FDA-Public Use
  Company Number: GB-MHRA-MED-202303021613543260-VTLCG

PATIENT
  Sex: Female

DRUGS (1)
  1. BIKTARVY [Suspect]
     Active Substance: BICTEGRAVIR SODIUM\EMTRICITABINE\TENOFOVIR ALAFENAMIDE FUMARATE
     Indication: Product used for unknown indication
     Dosage: UNK
     Route: 065

REACTIONS (5)
  - Joint stiffness [Recovered/Resolved]
  - Muscle spasms [Recovered/Resolved]
  - Red blood cell sedimentation rate increased [Recovered/Resolved]
  - C-reactive protein increased [Recovered/Resolved]
  - Rash [Recovered/Resolved]
